FAERS Safety Report 7817151-1 (Version None)
Quarter: 2011Q4

REPORT INFORMATION
  Report Type: 
  Country: None (occurrence: None)
  Receive Date: 20111017
  Receipt Date: 20111017
  Transmission Date: 20120403
  Serious: Yes (Disabling, Other)
  Sender: FDA-Public Use
  Company Number: None

PATIENT

DRUGS (1)
  1. MIRENA [Suspect]
     Indication: CONTRACEPTION
     Dates: start: 20110928, end: 20111013

REACTIONS (11)
  - POSTPARTUM DEPRESSION [None]
  - PAIN IN EXTREMITY [None]
  - MENORRHAGIA [None]
  - VAGINAL DISCHARGE [None]
  - ANHEDONIA [None]
  - APATHY [None]
  - ABNORMAL BEHAVIOUR [None]
  - MUSCLE SPASMS [None]
  - FEELING ABNORMAL [None]
  - MIGRAINE [None]
  - HEADACHE [None]
